FAERS Safety Report 17430840 (Version 1)
Quarter: 2020Q1

REPORT INFORMATION
  Report Type: Spontaneous
  Country: US (occurrence: US)
  Receive Date: 20200217
  Receipt Date: 20200217
  Transmission Date: 20200409
  Serious: Yes (Death)
  Sender: FDA-Public Use
  Company Number: None

PATIENT
  Sex: Female

DRUGS (3)
  1. PRILOSEC [Concomitant]
     Active Substance: OMEPRAZOLE MAGNESIUM
  2. XANAX [Concomitant]
     Active Substance: ALPRAZOLAM
  3. VEMLIDY [Suspect]
     Active Substance: TENOFOVIR ALAFENAMIDE FUMARATE
     Indication: HEPATITIS A
     Dosage: ?          OTHER FREQUENCY:TK 1 T PO D;?
     Route: 048
     Dates: start: 20180427

REACTIONS (1)
  - Death [None]
